FAERS Safety Report 22087991 (Version 1)
Quarter: 2023Q1

REPORT INFORMATION
  Report Type: Report from Study
  Country: CH (occurrence: CH)
  Receive Date: 20230313
  Receipt Date: 20230313
  Transmission Date: 20230418
  Serious: Yes (Hospitalization)
  Sender: FDA-Public Use
  Company Number: CH-ABBVIE-4335397

PATIENT
  Age: 72 Year
  Sex: Female

DRUGS (5)
  1. CARBIDOPA\LEVODOPA [Suspect]
     Active Substance: CARBIDOPA\LEVODOPA
     Indication: Parkinson^s disease
     Dosage: MD 7.5ML, CRD 2.2 ML/H, ED 1.5 ML?16H THERAPY
     Route: 050
     Dates: start: 20230307
  2. CARBIDOPA\LEVODOPA [Suspect]
     Active Substance: CARBIDOPA\LEVODOPA
     Dosage: MD 8.0ML, CRD 2.1 ML/H, ED 1.5 ML?16H THERAPY
     Route: 050
     Dates: start: 20230213, end: 20230215
  3. CARBIDOPA\LEVODOPA [Suspect]
     Active Substance: CARBIDOPA\LEVODOPA
     Dosage: MD 7.5ML, CRD 2.4 ML/H, ED 1.5 ML?16H THERAPY
     Route: 050
     Dates: start: 20230215, end: 20230307
  4. CARBIDOPA\LEVODOPA [Suspect]
     Active Substance: CARBIDOPA\LEVODOPA
     Dosage: MD 5.0ML, CRD 2.1 ML/H, ED 1.0 ML
     Route: 050
     Dates: start: 20230206, end: 20230210
  5. CARBIDOPA\LEVODOPA [Suspect]
     Active Substance: CARBIDOPA\LEVODOPA
     Dosage: MD 5.0ML, CRD 2.3 ML/H, ED 1.5 ML?16H THERAPY
     Route: 050
     Dates: start: 20230210, end: 20230213

REACTIONS (2)
  - Fall [Not Recovered/Not Resolved]
  - Radius fracture [Not Recovered/Not Resolved]

NARRATIVE: CASE EVENT DATE: 20230307
